FAERS Safety Report 21174690 (Version 3)
Quarter: 2022Q4

REPORT INFORMATION
  Report Type: Report from Study
  Country: US (occurrence: US)
  Receive Date: 20220805
  Receipt Date: 20221121
  Transmission Date: 20230113
  Serious: No
  Sender: FDA-Public Use
  Company Number: US-ACADIA PHARMACEUTICALS INC.-ACA-2022-PIM-002410

PATIENT
  Sex: Female

DRUGS (12)
  1. NUPLAZID [Interacting]
     Active Substance: PIMAVANSERIN TARTRATE
     Indication: Parkinson^s disease psychosis
     Dosage: 34 MILLIGRAM, QD
     Route: 065
     Dates: start: 20220606, end: 20220627
  2. NUPLAZID [Interacting]
     Active Substance: PIMAVANSERIN TARTRATE
     Dosage: 34 MILLIGRAM, QD
     Route: 048
     Dates: start: 20220627, end: 20220718
  3. NUPLAZID [Interacting]
     Active Substance: PIMAVANSERIN TARTRATE
     Dosage: 34 MILLIGRAM, QD
     Route: 048
     Dates: end: 20221025
  4. NUPLAZID [Interacting]
     Active Substance: PIMAVANSERIN TARTRATE
     Dosage: 34 MILLIGRAM, QD
     Route: 065
     Dates: start: 202210, end: 20221101
  5. PAXIL [Interacting]
     Active Substance: PAROXETINE HYDROCHLORIDE
  6. SEROQUEL [Interacting]
     Active Substance: QUETIAPINE FUMARATE
  7. GABAPENTIN [Concomitant]
     Active Substance: GABAPENTIN
  8. BETAMETHASONE\CLOTRIMAZOLE [Concomitant]
     Active Substance: BETAMETHASONE\CLOTRIMAZOLE
  9. LASIX [Concomitant]
     Active Substance: FUROSEMIDE
  10. CALCIUM CARBONATE [Concomitant]
     Active Substance: CALCIUM CARBONATE
  11. MELOXICAM [Concomitant]
     Active Substance: MELOXICAM
  12. SINEMET [Concomitant]
     Active Substance: CARBIDOPA\LEVODOPA

REACTIONS (9)
  - Product dose omission issue [Recovered/Resolved]
  - Product dose omission issue [Not Recovered/Not Resolved]
  - Mental disorder [Unknown]
  - Adverse drug reaction [Unknown]
  - Therapeutic response unexpected [Unknown]
  - Drug interaction [Not Recovered/Not Resolved]
  - Road traffic accident [Unknown]
  - Ill-defined disorder [Unknown]
  - Hallucination [Not Recovered/Not Resolved]

NARRATIVE: CASE EVENT DATE: 20220101
